FAERS Safety Report 7348135-8 (Version None)
Quarter: 2011Q1

REPORT INFORMATION
  Report Type: 
  Country: None (occurrence: None)
  Receive Date: 20110311
  Receipt Date: 20110125
  Transmission Date: 20110831
  Serious: Yes (Death)
  Sender: FDA-Public Use
  Company Number: US-TYCO HEALTHCARE/MALLINCKRODT-T201100403

PATIENT
  Age: 62 Year

DRUGS (10)
  1. ZOLPIDEM [Suspect]
     Route: 048
  2. QUETIAPINE [Suspect]
     Route: 048
  3. TRAMADOL HCL [Suspect]
     Route: 048
  4. FLUOXETINE [Suspect]
     Route: 048
  5. SIMVASTATIN [Suspect]
     Route: 048
  6. DIAZEPAM [Suspect]
     Route: 048
  7. METHADOSE [Suspect]
     Route: 048
  8. BUSPIRONE [Suspect]
     Route: 048
  9. VENLAFAXINE [Suspect]
     Route: 048
  10. ALBUTEROL [Suspect]
     Route: 048

REACTIONS (1)
  - CARDIO-RESPIRATORY ARREST [None]
